FAERS Safety Report 21324987 (Version 1)
Quarter: 2022Q3

REPORT INFORMATION
  Report Type: Spontaneous
  Country: CN (occurrence: None)
  Receive Date: 20220912
  Receipt Date: 20220912
  Transmission Date: 20221027
  Serious: Yes (Other)
  Sender: FDA-Public Use
  Company Number: CN-ROCHE-3176752

PATIENT
  Age: 68 Year
  Sex: Male
  Weight: 62 kg

DRUGS (2)
  1. AVASTIN [Suspect]
     Active Substance: BEVACIZUMAB
     Indication: Colon cancer
     Dosage: ON AN UNSPECIFIED DATE, TREATMENT WITH BEVACIZUMAB
     Route: 041
     Dates: start: 20220801
  2. PEMBROLIZUMAB [Concomitant]
     Active Substance: PEMBROLIZUMAB
     Indication: Colon cancer
     Dosage: ON AN UNSPECIFIED DATE, TREATMENT WITH PEMBROLIZUMAB
     Route: 041
     Dates: start: 20220801

REACTIONS (2)
  - Hypoaesthesia [Recovering/Resolving]
  - Transaminases increased [Unknown]

NARRATIVE: CASE EVENT DATE: 20220804
